FAERS Safety Report 9833853 (Version 1)
Quarter: 2014Q1

REPORT INFORMATION
  Report Type: Spontaneous
  Country: US (occurrence: US)
  Receive Date: 20140122
  Receipt Date: 20140122
  Transmission Date: 20141002
  Serious: No
  Sender: FDA-Public Use
  Company Number: US-BIOGENIDEC-2014BI005133

PATIENT
  Sex: Female

DRUGS (12)
  1. TECFIDERA [Suspect]
     Indication: MULTIPLE SCLEROSIS
     Route: 048
  2. ADDERALL [Concomitant]
  3. ASPIRIN [Concomitant]
  4. BACLOFEN [Concomitant]
  5. BUPROPION HCI [Concomitant]
  6. CRESTOR [Concomitant]
  7. DISOPYRAMIDE PHOSPHATE [Concomitant]
  8. HYDOCHLOROTHIAZIDE [Concomitant]
  9. ISOSORBIDE MONONITRATE [Concomitant]
  10. NITROGLYCERIN [Concomitant]
  11. NITROSTAT [Concomitant]
  12. OMEPRAZOLE [Concomitant]

REACTIONS (2)
  - Adverse event [Unknown]
  - Flushing [Unknown]
